FAERS Safety Report 4642977-5 (Version None)
Quarter: 2005Q2

REPORT INFORMATION
  Report Type: 
  Country: None (occurrence: None)
  Receive Date: 20050422
  Receipt Date: 20050415
  Transmission Date: 20051028
  Serious: Yes (Death, Hospitalization)
  Sender: FDA-Public Use
  Company Number: JP-ABBOTT-05P-087-0297736-00

PATIENT
  Age: 81 Year
  Sex: Female

DRUGS (8)
  1. CLARITHROMYCIN [Suspect]
     Indication: UPPER RESPIRATORY TRACT INFLAMMATION
     Route: 048
     Dates: start: 20021003, end: 20021005
  2. CLOXAZOLAM [Suspect]
     Indication: DEPRESSION
     Route: 048
     Dates: end: 20021005
  3. PEMIROLAST POTASSIUM [Concomitant]
     Indication: RHINITIS ALLERGIC
     Route: 048
     Dates: end: 20021005
  4. OXATOMIDE [Concomitant]
     Indication: DRUG USE FOR UNKNOWN INDICATION
     Route: 048
     Dates: end: 20021005
  5. SETIPTILINE MALEATE [Concomitant]
     Indication: DEPRESSION
     Route: 048
     Dates: end: 20021005
  6. NIFEDIPINE [Concomitant]
     Indication: HYPERTENSION
     Route: 048
     Dates: start: 20000803
  7. DISOPYRAMIDE [Concomitant]
     Indication: ARRHYTHMIA
     Route: 048
     Dates: start: 20000803
  8. FUROSEMIDE [Concomitant]
     Indication: HYPERTENSION
     Route: 048
     Dates: start: 20000803

REACTIONS (4)
  - ASTHENIA [None]
  - AZOTAEMIA [None]
  - CONDITION AGGRAVATED [None]
  - RENAL FAILURE [None]
